FAERS Safety Report 8433912-2 (Version None)
Quarter: 2012Q2

REPORT INFORMATION
  Report Type: 
  Country: None (occurrence: None)
  Receive Date: 20120613
  Receipt Date: 20120531
  Transmission Date: 20120825
  Serious: No
  Sender: FDA-Public Use
  Company Number: US-ASTRAZENECA-2012SE36710

PATIENT
  Age: 82 Year
  Sex: Female

DRUGS (4)
  1. ATACAND [Suspect]
     Route: 048
  2. BROVANA [Suspect]
     Route: 065
  3. BUDESONIDE [Suspect]
     Route: 055
  4. DIURETICS [Concomitant]

REACTIONS (2)
  - OEDEMA PERIPHERAL [None]
  - PETECHIAE [None]
